FAERS Safety Report 16748070 (Version 1)
Quarter: 2019Q3

REPORT INFORMATION
  Report Type: Spontaneous
  Country: CA (occurrence: CA)
  Receive Date: 20190827
  Receipt Date: 20190827
  Transmission Date: 20191005
  Serious: Yes (Other)
  Sender: FDA-Public Use
  Company Number: CA-TEVA-2019-CA-1072478

PATIENT
  Age: 53 Year
  Sex: Male

DRUGS (4)
  1. PREDNISONE. [Suspect]
     Active Substance: PREDNISONE
     Route: 065
  2. MUPIROCIN CALCIUM DIHYDRATE [Suspect]
     Active Substance: MUPIROCIN CALCIUM
     Indication: ULCER
     Route: 061
  3. CEPHALEXIN. [Suspect]
     Active Substance: CEPHALEXIN
     Indication: ULCER
     Route: 048
  4. PREDNISONE. [Suspect]
     Active Substance: PREDNISONE
     Indication: PYODERMA GANGRENOSUM
     Route: 048

REACTIONS (5)
  - Therapeutic product effect incomplete [Unknown]
  - Rebound effect [Recovered/Resolved]
  - Blood glucose increased [Recovered/Resolved]
  - Pyoderma gangrenosum [Recovered/Resolved]
  - Diabetes mellitus [Unknown]
